FAERS Safety Report 8469998-9 (Version None)
Quarter: 2012Q2

REPORT INFORMATION
  Report Type: 
  Country: None (occurrence: None)
  Receive Date: 20120627
  Receipt Date: 20120618
  Transmission Date: 20120825
  Serious: No
  Sender: FDA-Public Use
  Company Number: US-BIOGENIDEC-2012BI021641

PATIENT
  Sex: Female

DRUGS (2)
  1. TYSABRI [Suspect]
     Indication: MULTIPLE SCLEROSIS
     Route: 042
     Dates: start: 20080229, end: 20080718
  2. TYSABRI [Suspect]
     Route: 042
     Dates: start: 20110127

REACTIONS (4)
  - FALL [None]
  - VISUAL IMPAIRMENT [None]
  - MULTIPLE SCLEROSIS [None]
  - DYSURIA [None]
